FAERS Safety Report 5764276-0 (Version None)
Quarter: 2008Q2

REPORT INFORMATION
  Report Type: 
  Country: None (occurrence: None)
  Receive Date: 20080604
  Receipt Date: 20080520
  Transmission Date: 20081010
  Serious: Yes (Death)
  Sender: FDA-Public Use
  Company Number: 2008AL005583

PATIENT
  Age: 83 Year
  Sex: Male

DRUGS (13)
  1. DIGOXIN [Suspect]
     Indication: CORONARY ARTERY DISEASE
     Dosage: 0.125MG QD PO
     Route: 048
     Dates: start: 20070905, end: 20080422
  2. DIGOXIN [Suspect]
     Indication: CORONARY ARTERY DISEASE
     Dosage: 0.125MG QD PO
     Route: 048
     Dates: start: 20070905, end: 20080422
  3. FENTANYL [Concomitant]
  4. LEVOTHYROXINE SODIUM [Concomitant]
  5. LIPITOR [Concomitant]
  6. CYMBALTA [Concomitant]
  7. POTASSIUM CHLORIDE [Concomitant]
  8. METOPROLOL [Concomitant]
  9. FUROSEMIDE [Concomitant]
  10. DETROL [Concomitant]
  11. LORAZEPAM [Concomitant]
  12. HYDROCODONE [Concomitant]
  13. ALLOPURINOL [Concomitant]

REACTIONS (1)
  - DEATH [None]
